FAERS Safety Report 7408937-6 (Version None)
Quarter: 2011Q1

REPORT INFORMATION
  Report Type: 
  Country: None (occurrence: None)
  Receive Date: 20110301
  Receipt Date: 20101206
  Transmission Date: 20110831
  Serious: Yes (Disabling, Other)
  Sender: FDA-Public Use
  Company Number: ALA_01193_2010

PATIENT
  Sex: Female
  Weight: 59.4212 kg

DRUGS (3)
  1. PEPCID [Concomitant]
  2. REGLAN [Suspect]
     Indication: IRRITABLE BOWEL SYNDROME
     Dosage: DF ORAL
     Route: 048
     Dates: start: 20080512, end: 20090813
  3. REGLAN [Suspect]
     Indication: ABDOMINAL PAIN UPPER
     Dosage: DF ORAL
     Route: 048
     Dates: start: 20080512, end: 20090813

REACTIONS (1)
  - TARDIVE DYSKINESIA [None]
